FAERS Safety Report 9773908 (Version 1)
Quarter: 2013Q4

REPORT INFORMATION
  Report Type: Spontaneous
  Country: US (occurrence: US)
  Receive Date: 20131220
  Receipt Date: 20131220
  Transmission Date: 20140711
  Serious: Yes (Hospitalization, Other)
  Sender: FDA-Public Use
  Company Number: US-009507513-1312USA008025

PATIENT
  Sex: Male

DRUGS (4)
  1. REBETOL [Suspect]
     Indication: HEPATITIS C
     Dosage: UNK
     Route: 048
     Dates: start: 20130118, end: 20130628
  2. REBETOL [Suspect]
     Dosage: UNK
     Route: 048
     Dates: start: 20110103, end: 20110228
  3. PEGINTRON [Suspect]
     Indication: HEPATITIS C
     Dosage: UNK
     Dates: start: 20130118, end: 20130628
  4. TELAPREVIR [Suspect]
     Indication: HEPATITIS C
     Dosage: UNK
     Dates: start: 20130118, end: 20130315

REACTIONS (5)
  - Ileus [Unknown]
  - Abdominal pain upper [Unknown]
  - Drug ineffective [Unknown]
  - Red blood cell count decreased [Unknown]
  - White blood cell count decreased [Unknown]
